FAERS Safety Report 19242590 (Version 1)
Quarter: 2021Q2

REPORT INFORMATION
  Report Type: Spontaneous
  Country: US (occurrence: US)
  Receive Date: 20210510
  Receipt Date: 20210510
  Transmission Date: 20210717
  Serious: Yes (Other)
  Sender: FDA-Public Use
  Company Number: US-JNJFOC-20210511958

PATIENT
  Sex: Male

DRUGS (1)
  1. RISPERDAL [Suspect]
     Active Substance: RISPERIDONE
     Indication: PRODUCT USED FOR UNKNOWN INDICATION
     Route: 048
     Dates: start: 2006, end: 2009

REACTIONS (7)
  - Blood prolactin increased [Unknown]
  - Gynaecomastia [Unknown]
  - Depression [Unknown]
  - Suicide attempt [Unknown]
  - Insomnia [Unknown]
  - Anxiety [Unknown]
  - Muscle spasms [Unknown]
